FAERS Safety Report 12310379 (Version 1)
Quarter: 2016Q2

REPORT INFORMATION
  Report Type: Spontaneous
  Country: US (occurrence: US)
  Receive Date: 20160427
  Receipt Date: 20160427
  Transmission Date: 20160815
  Serious: No
  Sender: FDA-Public Use
  Company Number: US-MYLANLABS-2015M1033389

PATIENT
  Sex: Male
  Weight: 81.63 kg

DRUGS (4)
  1. LORAZEPAM. [Suspect]
     Active Substance: LORAZEPAM
     Indication: OFF LABEL USE
  2. BISOPROLOL/HYDROCHLOROTHIAZIDE [Suspect]
     Active Substance: BISOPROLOL FUMARATE\HYDROCHLOROTHIAZIDE
     Indication: HYPERTENSION
     Dosage: 2.5/6.25 MG, QD
     Route: 048
     Dates: start: 201207, end: 201312
  3. LORAZEPAM. [Suspect]
     Active Substance: LORAZEPAM
     Indication: SLEEP DISORDER THERAPY
     Dosage: 1 MG, QD
     Route: 048
     Dates: start: 201403, end: 2014
  4. LORAZEPAM. [Suspect]
     Active Substance: LORAZEPAM
     Indication: FEELING OF RELAXATION

REACTIONS (2)
  - Injury [None]
  - Gynaecomastia [Not Recovered/Not Resolved]
